FAERS Safety Report 21879525 (Version 1)
Quarter: 2023Q1

REPORT INFORMATION
  Report Type: Spontaneous
  Country: US (occurrence: US)
  Receive Date: 20230118
  Receipt Date: 20230118
  Transmission Date: 20230417
  Serious: Yes (Other)
  Sender: FDA-Public Use
  Company Number: US-INDIVIOR EUROPE LIMITED-INDV-137470-2023

PATIENT
  Sex: Male
  Weight: 10.3 kg

DRUGS (1)
  1. BUPRENORPHINE [Suspect]
     Active Substance: BUPRENORPHINE
     Indication: Product used for unknown indication
     Dosage: UNK
     Route: 064

REACTIONS (5)
  - Developmental regression [Unknown]
  - Developmental delay [Unknown]
  - Hypotonia [Unknown]
  - Short stature [Unknown]
  - Foetal exposure during pregnancy [Recovered/Resolved]
